FAERS Safety Report 9271788 (Version 1)
Quarter: 2013Q2

REPORT INFORMATION
  Report Type: Spontaneous
  Country: US (occurrence: US)
  Receive Date: 20130506
  Receipt Date: 20130506
  Transmission Date: 20140414
  Serious: No
  Sender: FDA-Public Use
  Company Number: US-PFIZER INC-K201000518

PATIENT
  Sex: Female
  Weight: 53 kg

DRUGS (5)
  1. LEVOXYL [Suspect]
     Indication: HYPOTHYROIDISM
     Dosage: 125 UG, 1X/DAY
  2. LEVOXYL [Suspect]
     Dosage: 1.5 DF, 1X/DAY
     Dates: start: 201004
  3. LEVOXYL [Suspect]
     Dosage: 175 UG, 1X/DAY
  4. CYTOMEL [Suspect]
     Indication: HYPOTHYROIDISM
     Dosage: UNK
     Dates: start: 201001, end: 201003
  5. YAZ [Concomitant]
     Indication: UTERINE LEIOMYOMA
     Dosage: UNK
     Dates: start: 200909

REACTIONS (8)
  - Memory impairment [Not Recovered/Not Resolved]
  - Weight loss poor [Not Recovered/Not Resolved]
  - Fatigue [Not Recovered/Not Resolved]
  - Onychoclasis [Not Recovered/Not Resolved]
  - Weight increased [Unknown]
  - Feeling cold [Not Recovered/Not Resolved]
  - Drug ineffective [Unknown]
  - Weight decreased [Unknown]
